FAERS Safety Report 17818906 (Version 1)
Quarter: 2020Q2

REPORT INFORMATION
  Report Type: Spontaneous
  Country: IT (occurrence: IT)
  Receive Date: 20200523
  Receipt Date: 20200523
  Transmission Date: 20200714
  Serious: Yes (Other)
  Sender: FDA-Public Use
  Company Number: IT-ROCHE-2605339

PATIENT
  Age: 68 Year
  Sex: Male

DRUGS (2)
  1. XARELTO [Suspect]
     Active Substance: RIVAROXABAN
     Indication: THROMBOSIS PROPHYLAXIS
     Dosage: MOST RECENT DOSE ON 14/JUN/2017.
     Route: 048
     Dates: start: 20151201
  2. CAPECITABINE. [Suspect]
     Active Substance: CAPECITABINE
     Indication: PROSTATE CANCER METASTATIC
     Route: 048

REACTIONS (1)
  - Haematuria [Recovered/Resolved]

NARRATIVE: CASE EVENT DATE: 20151201
